FAERS Safety Report 17462822 (Version 1)
Quarter: 2020Q1

REPORT INFORMATION
  Report Type: Spontaneous
  Country: CA (occurrence: CA)
  Receive Date: 20200226
  Receipt Date: 20200226
  Transmission Date: 20200409
  Serious: Yes (Other)
  Sender: FDA-Public Use
  Company Number: CA-TEVA-2020-CA-1189808

PATIENT
  Age: 75 Year
  Sex: Female

DRUGS (11)
  1. SULFASALAZINE. [Suspect]
     Active Substance: SULFASALAZINE
     Indication: PRODUCT USED FOR UNKNOWN INDICATION
     Route: 054
  2. PROLIA [Concomitant]
     Active Substance: DENOSUMAB
  3. DICETEL [Concomitant]
     Active Substance: PINAVERIUM BROMIDE
  4. RESTORALAX [Concomitant]
     Active Substance: POLYETHYLENE GLYCOL 3350
  5. SYMBICORT [Concomitant]
     Active Substance: BUDESONIDE\FORMOTEROL FUMARATE DIHYDRATE
     Dosage: 2 DOSAGE FORMS DAILY;
  6. PREVACID [Concomitant]
     Active Substance: LANSOPRAZOLE
     Dosage: 60 MILLIGRAM DAILY;
  7. OMNARIS [Concomitant]
     Active Substance: CICLESONIDE
     Route: 065
  8. CETIRIZINE HYDROCHLORIDE. [Concomitant]
     Active Substance: CETIRIZINE HYDROCHLORIDE
  9. CORTISONE [Concomitant]
     Active Substance: CORTISONE
     Route: 061
  10. PREDNISONE. [Suspect]
     Active Substance: PREDNISONE
     Indication: PRODUCT USED FOR UNKNOWN INDICATION
     Route: 065
  11. METAMUCIL [Concomitant]
     Active Substance: PLANTAGO SEED

REACTIONS (5)
  - Frequent bowel movements [Unknown]
  - Abdominal pain [Unknown]
  - Joint dislocation [Unknown]
  - Weight decreased [Unknown]
  - Drug ineffective [Unknown]
